FAERS Safety Report 13586978 (Version 1)
Quarter: 2017Q2

REPORT INFORMATION
  Report Type: Spontaneous
  Country: US (occurrence: US)
  Receive Date: 20170526
  Receipt Date: 20170526
  Transmission Date: 20170830
  Serious: Yes (Other)
  Sender: FDA-Public Use
  Company Number: US-ROCHE-728168

PATIENT
  Age: 59 Year
  Sex: Female
  Weight: 61.2 kg

DRUGS (20)
  1. REGLAN [Concomitant]
     Active Substance: METOCLOPRAMIDE HYDROCHLORIDE
     Dosage: AS NEEDED, BEFORE MEALS
     Route: 048
  2. NIFEDIPINE. [Concomitant]
     Active Substance: NIFEDIPINE
     Dosage: SUSTAINED RELEASE
     Route: 048
  3. MACRODANTIN [Concomitant]
     Active Substance: NITROFURANTOIN
     Dosage: BED TIME
     Route: 048
  4. VALCYTE [Suspect]
     Active Substance: VALGANCICLOVIR HYDROCHLORIDE
     Route: 048
     Dates: start: 20100626, end: 20100712
  5. ASPIRIN. [Concomitant]
     Active Substance: ASPIRIN
     Route: 048
  6. HYDROCHLOROTHIAZIDE. [Concomitant]
     Active Substance: HYDROCHLOROTHIAZIDE
     Route: 048
  7. OMEPRAZOLE. [Concomitant]
     Active Substance: OMEPRAZOLE
     Dosage: DELAYED RELEASE TABLET (E.C.)
     Route: 048
  8. PREDNISONE. [Concomitant]
     Active Substance: PREDNISONE
     Route: 048
  9. PREDNISONE. [Concomitant]
     Active Substance: PREDNISONE
     Route: 048
  10. VITAMIN D3 [Concomitant]
     Active Substance: CHOLECALCIFEROL
     Dosage: TDD: 2000 UNITS
     Route: 048
  11. MAGNESIUM OXIDE. [Concomitant]
     Active Substance: MAGNESIUM OXIDE
     Route: 048
  12. MYFORTIC [Concomitant]
     Active Substance: MYCOPHENOLATE SODIUM
     Dosage: DELAYED RELEASE (E.C.)
     Route: 048
  13. VALCYTE [Suspect]
     Active Substance: VALGANCICLOVIR HYDROCHLORIDE
     Route: 048
     Dates: start: 20100524, end: 20100626
  14. LIPITOR [Concomitant]
     Active Substance: ATORVASTATIN CALCIUM
     Route: 048
  15. PROGRAF [Concomitant]
     Active Substance: TACROLIMUS\TACROLIMUS ANHYDROUS
     Dosage: 12 HOURS APART
     Route: 048
  16. VALCYTE [Suspect]
     Active Substance: VALGANCICLOVIR HYDROCHLORIDE
     Indication: PROPHYLAXIS
     Route: 048
     Dates: start: 20100217, end: 20100519
  17. PHOSPHA 250 NEUTRAL [Concomitant]
     Active Substance: POTASSIUM PHOSPHATE, MONOBASIC\SODIUM PHOSPHATE, DIBASIC, ANHYDROUS\SODIUM PHOSPHATE, MONOBASIC, MONOHYDRATE
     Dosage: WITH MEALS
     Route: 048
  18. CALCIUM CARBONATE. [Concomitant]
     Active Substance: CALCIUM CARBONATE
     Dosage: CALCIUM CARBONATE CHEWABLE 300 MG (750 MG) ORAL TABLET, BETWEEN MEALS
     Route: 048
  19. DOCUSATE SODIUM. [Concomitant]
     Active Substance: DOCUSATE SODIUM
     Dosage: PRN
     Route: 048
  20. INSULIN [Concomitant]
     Active Substance: INSULIN NOS
     Dosage: INSULIN PUMP MISC. INJECT UNDER SKIN EVERY ONE HOUR
     Route: 058

REACTIONS (2)
  - Cytomegalovirus viraemia [Recovered/Resolved]
  - Neutropenia [Recovering/Resolving]

NARRATIVE: CASE EVENT DATE: 201004
